FAERS Safety Report 14607900 (Version 1)
Quarter: 2018Q1

REPORT INFORMATION
  Report Type: Spontaneous
  Country: DE (occurrence: DE)
  Receive Date: 20180307
  Receipt Date: 20180307
  Transmission Date: 20180509
  Serious: Yes (Other)
  Sender: FDA-Public Use
  Company Number: DE-TEVA-2018-DE-855508

PATIENT
  Age: 21 Year
  Sex: Female

DRUGS (4)
  1. VIMPAT [Suspect]
     Active Substance: LACOSAMIDE
     Indication: EPILEPSY
     Dosage: 100 MILLIGRAM DAILY; BEING CONSTANTLY INCREASED
     Route: 065
  2. BRIVIACT [Suspect]
     Active Substance: BRIVARACETAM
     Indication: EPILEPSY
     Dosage: BEING CONSTANTLY INCREASED
     Route: 065
  3. LAMOTRIGINE. [Suspect]
     Active Substance: LAMOTRIGINE
     Indication: EPILEPSY
     Dosage: BEING CONSTANTLY INCREASED?DOSE INCREASE TO 100 MG
     Route: 065
  4. BRIVIACT [Suspect]
     Active Substance: BRIVARACETAM
     Dosage: 20 MILLIGRAM DAILY;

REACTIONS (7)
  - Intentional product misuse [Unknown]
  - Fatigue [Recovering/Resolving]
  - Separation anxiety disorder [Unknown]
  - Listless [Recovering/Resolving]
  - Depression [Recovering/Resolving]
  - Seizure [Unknown]
  - Unevaluable event [Unknown]
